FAERS Safety Report 9180694 (Version 2)
Quarter: 2013Q2

REPORT INFORMATION
  Report Type: Spontaneous
  Country: US (occurrence: None)
  Receive Date: 20130320
  Receipt Date: 20130423
  Transmission Date: 20140414
  Serious: Yes (Other)
  Sender: FDA-Public Use
  Company Number: 2013P1003159

PATIENT
  Age: 57 Year
  Sex: Female

DRUGS (1)
  1. INFUMORPH [Suspect]
     Indication: PAIN

REACTIONS (3)
  - Drug ineffective [None]
  - Device infusion issue [None]
  - Pump reservoir issue [None]
